FAERS Safety Report 12437828 (Version 1)
Quarter: 2016Q2

REPORT INFORMATION
  Report Type: Spontaneous
  Country: US (occurrence: None)
  Receive Date: 20160603
  Receipt Date: 20160603
  Transmission Date: 20160815
  Serious: Yes (Other)
  Sender: FDA-Public Use
  Company Number: None

PATIENT
  Age: 16 Year
  Sex: Female
  Weight: 71.03 kg

DRUGS (8)
  1. PROBIOTIC [Concomitant]
     Active Substance: PROBIOTICS NOS
  2. ALTAVERA [Concomitant]
     Active Substance: ETHINYL ESTRADIOL\LEVONORGESTREL
  3. OMEGA 3 [Concomitant]
     Active Substance: OMEGA-3 FATTY ACIDS
  4. LAMOTRIGINE. [Concomitant]
     Active Substance: LAMOTRIGINE
  5. ZYRTEC [Concomitant]
     Active Substance: CETIRIZINE HYDROCHLORIDE
  6. OLANZAPINE, 15 MG PRASCO [Suspect]
     Active Substance: OLANZAPINE
     Indication: BIPOLAR DISORDER
     Route: 048
     Dates: start: 20160329, end: 20160513
  7. TOPIRAMATE. [Concomitant]
     Active Substance: TOPIRAMATE
  8. ALPRAZOLAM ER [Concomitant]
     Active Substance: ALPRAZOLAM

REACTIONS (2)
  - Rash generalised [None]
  - Neutropenia [None]

NARRATIVE: CASE EVENT DATE: 20160512
